FAERS Safety Report 18115900 (Version 1)
Quarter: 2020Q3

REPORT INFORMATION
  Report Type: Spontaneous
  Country: US (occurrence: US)
  Receive Date: 20200805
  Receipt Date: 20200805
  Transmission Date: 20201103
  Serious: Yes (Other)
  Sender: FDA-Public Use
  Company Number: US-ASTRAZENECA-2020SE96590

PATIENT
  Age: 3857 Week
  Sex: Female
  Weight: 79.4 kg

DRUGS (1)
  1. SYMBICORT [Suspect]
     Active Substance: BUDESONIDE\FORMOTEROL FUMARATE DIHYDRATE
     Indication: CHRONIC OBSTRUCTIVE PULMONARY DISEASE
     Dosage: 80?4.5 MCG TWO PUFFS TWICE A DAY
     Route: 055
     Dates: end: 202007

REACTIONS (6)
  - COVID-19 [Not Recovered/Not Resolved]
  - Illness [Unknown]
  - Hypoacusis [Unknown]
  - Product dose omission issue [Not Recovered/Not Resolved]
  - Device delivery system issue [Unknown]
  - Intentional product misuse [Unknown]

NARRATIVE: CASE EVENT DATE: 202007
